FAERS Safety Report 8808957 (Version 1)
Quarter: 2012Q4

REPORT INFORMATION
  Report Type: Spontaneous
  Country: US (occurrence: None)
  Receive Date: 20120920
  Receipt Date: 20120920
  Transmission Date: 20130627
  Serious: Yes (Death)
  Sender: FDA-Public Use
  Company Number: None

PATIENT

DRUGS (1)
  1. CEFAZOLIN SODIUM [Suspect]

REACTIONS (3)
  - Cardiac arrest [None]
  - Blood pressure decreased [None]
  - Cardiac death [None]
